FAERS Safety Report 11354034 (Version 1)
Quarter: 2015Q3

REPORT INFORMATION
  Report Type: Spontaneous
  Country: US (occurrence: US)
  Receive Date: 20150807
  Receipt Date: 20150807
  Transmission Date: 20151125
  Serious: No
  Sender: FDA-Public Use
  Company Number: US-JNJFOC-20150424685

PATIENT
  Age: 68 Year
  Sex: Male
  Weight: 97.07 kg

DRUGS (15)
  1. MULTIVITAMINS [Concomitant]
     Active Substance: VITAMINS
     Indication: NUTRITIONAL SUPPLEMENTATION
     Dosage: YEARS
     Route: 065
  2. GARLIC PILLS [Concomitant]
     Indication: THERAPEUTIC SKIN CARE TOPICAL
     Dosage: YEARS
     Route: 065
  3. BIOTIN [Concomitant]
     Active Substance: BIOTIN
     Indication: ALOPECIA
     Route: 065
     Dates: start: 20150404
  4. NITRIC OXIDE. [Concomitant]
     Active Substance: NITRIC OXIDE
     Indication: EXERCISE ADEQUATE
     Dosage: AS NEEDED ABOUT A YEAR
     Route: 065
  5. GARLIC PILLS [Concomitant]
     Indication: BLOOD PRESSURE MEASUREMENT
     Dosage: YEARS
     Route: 065
  6. ASPIRIN. [Concomitant]
     Active Substance: ASPIRIN
     Indication: CARDIAC DISORDER
     Dosage: ABOUT A YR
     Route: 065
  7. PROBIOTIC [Concomitant]
     Active Substance: PROBIOTICS NOS
     Indication: GASTROINTESTINAL DISORDER
     Dosage: YEARS
     Route: 065
  8. FIBER SUPPLEMENT [Concomitant]
     Indication: GASTROINTESTINAL DISORDER
     Dosage: ABOUT A YEAR
     Route: 065
  9. SAW-PALMETTO [Concomitant]
     Indication: PROSTATIC DISORDER
     Route: 065
  10. COENZYME Q10 [Concomitant]
     Active Substance: UBIDECARENONE
     Indication: CARDIAC DISORDER
     Dosage: ABOUT 1 YR
     Route: 065
  11. AMLODIPINE [Concomitant]
     Active Substance: AMLODIPINE BESYLATE
     Indication: BLOOD PRESSURE MEASUREMENT
     Dosage: A COUPLE YEARS
     Route: 065
  12. FIBER SUPPLEMENT [Concomitant]
     Indication: BLOOD CHOLESTEROL
     Dosage: ABOUT A YEAR
     Route: 065
  13. MENS ROGAINE EXTRA STRENGTH [Suspect]
     Active Substance: MINOXIDIL
     Route: 061
  14. MENS ROGAINE EXTRA STRENGTH [Suspect]
     Active Substance: MINOXIDIL
     Indication: ALOPECIA
     Route: 061
     Dates: start: 20150404
  15. VITAMIN B [Concomitant]
     Active Substance: VITAMIN B
     Indication: NUTRITIONAL SUPPLEMENTATION
     Dosage: YEARS
     Route: 065

REACTIONS (3)
  - Skin exfoliation [Not Recovered/Not Resolved]
  - Pruritus [Not Recovered/Not Resolved]
  - Incorrect dose administered [Unknown]
